FAERS Safety Report 7328340-7 (Version None)
Quarter: 2011Q1

REPORT INFORMATION
  Report Type: 
  Country: None (occurrence: None)
  Receive Date: 20110303
  Receipt Date: 20110222
  Transmission Date: 20110831
  Serious: Yes (Hospitalization, Other)
  Sender: FDA-Public Use
  Company Number: JP-JNJFOC-20090607486

PATIENT
  Sex: Female
  Weight: 49 kg

DRUGS (16)
  1. DOXORUBICIN HCL [Suspect]
     Dosage: CYCLE 5
     Route: 042
  2. DOXORUBICIN HCL [Suspect]
     Dosage: CYCLE 5
     Route: 042
  3. AZUNOL [Concomitant]
     Indication: STOMATITIS
     Route: 002
  4. KENALOG [Concomitant]
     Indication: STOMATITIS
     Route: 049
  5. DOXORUBICIN HCL [Suspect]
     Indication: OVARIAN CANCER RECURRENT
     Dosage: CYCLE 5
     Route: 042
  6. DOXORUBICIN HCL [Suspect]
     Dosage: CYCLE 5
     Route: 042
  7. DOXORUBICIN HCL [Suspect]
     Dosage: CYCLE 5
     Route: 042
  8. JUZEN-TAIHO-TO [Concomitant]
     Indication: PROPHYLAXIS
     Route: 048
  9. DOXORUBICIN HCL [Suspect]
     Dosage: CYCLE 3
     Route: 042
  10. FLAVITAN [Concomitant]
     Indication: STOMATITIS
     Route: 048
  11. PYDOXAL [Concomitant]
     Indication: STOMATITIS
     Route: 048
  12. DOXORUBICIN HCL [Suspect]
     Dosage: CYCLE 4
     Route: 042
  13. DOXORUBICIN HCL [Suspect]
     Dosage: CYCLE 5
     Route: 042
  14. RINDERON-VG [Concomitant]
     Indication: PALMAR-PLANTAR ERYTHRODYSAESTHESIA SYNDROME
     Route: 061
  15. DOXORUBICIN HCL [Suspect]
     Dosage: CYCLE 2
     Route: 042
  16. DOXORUBICIN HCL [Suspect]
     Dosage: 70 MG TOTAL - CYCLE 1
     Route: 042

REACTIONS (4)
  - STAPHYLOCOCCAL INFECTION [None]
  - FEBRILE NEUTROPENIA [None]
  - PLATELET COUNT DECREASED [None]
  - PYELONEPHRITIS [None]
